FAERS Safety Report 7511167-0 (Version None)
Quarter: 2011Q2

REPORT INFORMATION
  Report Type: 
  Country: None (occurrence: None)
  Receive Date: 20110531
  Receipt Date: 20090316
  Transmission Date: 20111010
  Serious: Yes (Other)
  Sender: FDA-Public Use
  Company Number: US-BAYER-200915585NA

PATIENT
  Sex: Male
  Weight: 116 kg

DRUGS (9)
  1. PROTAMINE SULFATE [Concomitant]
     Dosage: 500CC
     Route: 042
     Dates: start: 20040411
  2. AMIODARONE HCL [Concomitant]
     Dosage: 150MG
     Route: 042
     Dates: start: 20040411
  3. RED BLOOD CELLS [Concomitant]
     Dosage: 10 UNITS
     Dates: start: 20040411
  4. TRASYLOL [Suspect]
     Indication: AORTIC DISSECTION
  5. PLASMA [Concomitant]
     Dosage: 10 UNITS
     Dates: start: 20040411
  6. HEPARIN [Concomitant]
     Dosage: UNK
     Route: 042
     Dates: start: 20040411
  7. PLATELETS [Concomitant]
     Dosage: 4 UNITS
     Dates: start: 20050411
  8. TRASYLOL [Suspect]
     Indication: AORTIC SURGERY
     Dosage: LOADING DOSE OF 200CC
     Dates: start: 20040411, end: 20040411
  9. LASIX [Concomitant]
     Dosage: UNK
     Route: 042
     Dates: start: 20040411

REACTIONS (9)
  - INJURY [None]
  - FEAR [None]
  - DEPRESSION [None]
  - ANHEDONIA [None]
  - CEREBROVASCULAR ACCIDENT [None]
  - ANXIETY [None]
  - PAIN [None]
  - RENAL FAILURE [None]
  - ADVERSE EVENT [None]
